FAERS Safety Report 26024594 (Version 1)
Quarter: 2025Q4

REPORT INFORMATION
  Report Type: Other
  Country: CA (occurrence: CA)
  Receive Date: 20251111
  Receipt Date: 20251111
  Transmission Date: 20260117
  Serious: Yes (Death, Life-Threatening, Hospitalization, Disabling)
  Sender: AMNEAL
  Company Number: CA-AMNEAL PHARMACEUTICALS-2025-AMRX-04257

PATIENT
  Age: 26 Year
  Sex: Female

DRUGS (6)
  1. CYCLOPHOSPHAMIDE [Suspect]
     Active Substance: CYCLOPHOSPHAMIDE
     Indication: Product used for unknown indication
     Dosage: UNK
     Route: 065
  2. PIPERACILLIN AND TAZOBACTAM [Suspect]
     Active Substance: PIPERACILLIN SODIUM\TAZOBACTAM SODIUM
     Indication: Product used for unknown indication
     Dosage: UNK
     Route: 065
  3. TETRACYCLINE HYDROCHLORIDE [Suspect]
     Active Substance: TETRACYCLINE HYDROCHLORIDE
     Indication: Product used for unknown indication
     Dosage: UNK, CAPSULE
     Route: 065
  4. CEFTAZIDIME [Suspect]
     Active Substance: CEFTAZIDIME
     Indication: Product used for unknown indication
     Dosage: POWDER FOR SOLUTION FOR INJECTION OR INFUSION
     Route: 065
  5. LEVAQUIN [Suspect]
     Active Substance: LEVOFLOXACIN
     Indication: Product used for unknown indication
     Dosage: UNK
     Route: 065
  6. DOXORUBICIN [Suspect]
     Active Substance: DOXORUBICIN
     Indication: Product used for unknown indication
     Dosage: UNK, INJECTION
     Route: 065

REACTIONS (2)
  - Hyperbilirubinaemia [Fatal]
  - Drug-induced liver injury [Fatal]
